FAERS Safety Report 4479921-X (Version None)
Quarter: 2004Q3

REPORT INFORMATION
  Report Type: 
  Country: None (occurrence: None)
  Receive Date: 20040923
  Receipt Date: 20040521
  Transmission Date: 20050211
  Serious: No
  Sender: FDA-Public Use
  Company Number: USA040568215

PATIENT
  Sex: Female

DRUGS (2)
  1. FORTEO [Suspect]
  2. OXYCODONE [Concomitant]

REACTIONS (3)
  - MUSCLE CRAMP [None]
  - PAIN [None]
  - TREMOR [None]
